FAERS Safety Report 13082565 (Version 1)
Quarter: 2017Q1

REPORT INFORMATION
  Report Type: Other
  Country: ES (occurrence: ES)
  Receive Date: 20170103
  Receipt Date: 20170103
  Transmission Date: 20170428
  Serious: Yes (Other)
  Sender: FDA-Public Use
  Company Number: ES-KOWA-16EU002499

PATIENT

DRUGS (1)
  1. LIVAZO [Suspect]
     Active Substance: PITAVASTATIN CALCIUM
     Indication: PRODUCT USED FOR UNKNOWN INDICATION
     Dosage: 2 MG, UNK
     Route: 048
     Dates: start: 201502, end: 20161116

REACTIONS (2)
  - Hypoacusis [Unknown]
  - Myalgia [Unknown]

NARRATIVE: CASE EVENT DATE: 2015
